FAERS Safety Report 4362495-1 (Version None)
Quarter: 2004Q2

REPORT INFORMATION
  Report Type: 
  Country: None (occurrence: None)
  Receive Date: 20040521
  Receipt Date: 20040513
  Transmission Date: 20050107
  Serious: Yes (Other)
  Sender: FDA-Public Use
  Company Number: PHNU2004DE01816

PATIENT
  Age: 10 Year
  Sex: Female

DRUGS (1)
  1. RITALIN [Suspect]
     Indication: ATTENTION DEFICIT/HYPERACTIVITY DISORDER
     Route: 048
     Dates: start: 20030101

REACTIONS (4)
  - ELECTROENCEPHALOGRAM ABNORMAL [None]
  - FALL [None]
  - LOSS OF CONSCIOUSNESS [None]
  - SYNCOPE [None]
